FAERS Safety Report 8126919-6 (Version None)
Quarter: 2012Q1

REPORT INFORMATION
  Report Type: 
  Country: None (occurrence: None)
  Receive Date: 20120210
  Receipt Date: 20120208
  Transmission Date: 20120608
  Serious: No
  Sender: FDA-Public Use
  Company Number: US-PFIZER INC-2012035061

PATIENT
  Sex: Female
  Weight: 56.689 kg

DRUGS (7)
  1. PLAVIX [Concomitant]
     Indication: ANTICOAGULANT THERAPY
     Dosage: UNK
  2. ACETYLSALICYLIC ACID [Concomitant]
     Dosage: UNK
  3. LIPITOR [Suspect]
     Dosage: 20 MG, 1X/DAY
     Route: 048
     Dates: start: 20120101
  4. SYNTHROID [Concomitant]
     Dosage: 0.25 MG, UNK
  5. COREG [Concomitant]
     Indication: MYOCARDIAL INFARCTION
     Dosage: 10 MG, UNK
  6. LIPITOR [Suspect]
     Indication: MYOCARDIAL INFARCTION
     Dosage: 40 MG, 1X/DAY
     Route: 048
     Dates: start: 20120101, end: 20120101
  7. TOPROL-XL [Concomitant]
     Indication: MYOCARDIAL INFARCTION
     Dosage: 25 MG, UNK

REACTIONS (1)
  - ALOPECIA [None]
